FAERS Safety Report 11767686 (Version 1)
Quarter: 2015Q4

REPORT INFORMATION
  Report Type: Spontaneous
  Country: US (occurrence: US)
  Receive Date: 20151123
  Receipt Date: 20151123
  Transmission Date: 20160304
  Serious: No
  Sender: FDA-Public Use
  Company Number: US-PERRIGO-14US011098

PATIENT
  Age: 70 Year
  Sex: Male
  Weight: 102.49 kg

DRUGS (3)
  1. TERAZOSIN [Concomitant]
     Active Substance: TERAZOSIN\TERAZOSIN HYDROCHLORIDE
     Indication: HYPERTENSION
     Dosage: UNK
     Route: 065
     Dates: start: 201403
  2. MIDAMOR [Suspect]
     Active Substance: AMILORIDE HYDROCHLORIDE
     Indication: HYPERTENSION
     Dosage: 10 MG, BID
     Route: 048
     Dates: start: 2013
  3. ATENOLOL. [Concomitant]
     Active Substance: ATENOLOL
     Indication: HYPERTENSION
     Dosage: UNK
     Route: 065
     Dates: start: 201403

REACTIONS (44)
  - Hyperhidrosis [Unknown]
  - Fatigue [Unknown]
  - Confusional state [Unknown]
  - Hypoaesthesia [Unknown]
  - Irritability [Unknown]
  - Dry mouth [Unknown]
  - Depressed mood [Unknown]
  - Increased viscosity of upper respiratory secretion [Unknown]
  - Muscular weakness [Unknown]
  - Chills [Unknown]
  - Pruritus generalised [Unknown]
  - Pain in extremity [Unknown]
  - Melaena [Recovered/Resolved]
  - Deafness [Recovered/Resolved]
  - Pain in jaw [Unknown]
  - Mental status changes [Unknown]
  - Cough [Unknown]
  - Muscle spasms [Unknown]
  - Musculoskeletal stiffness [Unknown]
  - Agitation [Unknown]
  - Pneumonia [Recovered/Resolved]
  - Vertigo [Unknown]
  - Arthralgia [Unknown]
  - Somnolence [Unknown]
  - Headache [Unknown]
  - Libido decreased [Unknown]
  - Dyspnoea [Unknown]
  - Insomnia [Unknown]
  - Pyrexia [Unknown]
  - Diarrhoea [Unknown]
  - Vision blurred [Unknown]
  - Neck pain [Unknown]
  - Decreased interest [None]
  - Photosensitivity reaction [Unknown]
  - Chest pain [Unknown]
  - Flatulence [Unknown]
  - Chromaturia [Unknown]
  - Haematochezia [Unknown]
  - Wheezing [Unknown]
  - Nervousness [Unknown]
  - Abdominal distension [Unknown]
  - Faeces discoloured [Unknown]
  - Palpitations [Unknown]
  - Nasal congestion [Unknown]

NARRATIVE: CASE EVENT DATE: 2013
